FAERS Safety Report 21593786 (Version 1)
Quarter: 2022Q4

REPORT INFORMATION
  Report Type: Spontaneous
  Country: US (occurrence: None)
  Receive Date: 20221114
  Receipt Date: 20221114
  Transmission Date: 20230113
  Serious: Yes (Death)
  Sender: FDA-Public Use
  Company Number: None

PATIENT
  Age: 62 Year
  Sex: Male
  Weight: 86.18 kg

DRUGS (14)
  1. EVEROLIMUS [Suspect]
     Active Substance: EVEROLIMUS
     Indication: Renal cancer
     Dosage: FREQUENCY : DAILY;?
     Route: 048
  2. ALBUTEROL [Concomitant]
  3. AMOXICILLIN-POT CLAVULANATE [Concomitant]
  4. ASPIRIN [Concomitant]
  5. ATORVASTATIN [Concomitant]
  6. CODEINE-GUAIFENESIN [Concomitant]
     Active Substance: CODEINE PHOSPHATE\GUAIFENESIN
  7. DEXAMETHASONE [Concomitant]
  8. DOCUSATE SODIUM [Concomitant]
  9. ELIQUIS [Concomitant]
  10. FUROSEMIDE [Concomitant]
  11. MORPHINE SULFATE [Concomitant]
  12. ONDANSETRON [Concomitant]
  13. PANTOPRAZOLE [Concomitant]
  14. SODIUM CHLORIDE [Concomitant]

REACTIONS (1)
  - Death [None]
